FAERS Safety Report 15553791 (Version 2)
Quarter: 2019Q1

REPORT INFORMATION
  Report Type: Spontaneous
  Country: US (occurrence: US)
  Receive Date: 20181026
  Receipt Date: 20190204
  Transmission Date: 20190417
  Serious: No
  Sender: FDA-Public Use
  Company Number: US-SA-2018SA292223

PATIENT
  Age: 54 Year
  Sex: Male

DRUGS (1)
  1. TOUJEO [Suspect]
     Active Substance: INSULIN GLARGINE
     Dosage: 15 IU, QD
     Route: 065
     Dates: start: 20170710

REACTIONS (2)
  - Blood glucose increased [Unknown]
  - Device operational issue [Unknown]
